FAERS Safety Report 5074065-0 (Version None)
Quarter: 2006Q3

REPORT INFORMATION
  Report Type: 
  Country: None (occurrence: None)
  Receive Date: 20060808
  Receipt Date: 20060329
  Transmission Date: 20061208
  Serious: No
  Sender: FDA-Public Use
  Company Number: US-AMGEN-US174403

PATIENT
  Sex: Female

DRUGS (4)
  1. SENSIPAR [Suspect]
     Indication: HYPERPARATHYROIDISM SECONDARY
     Dates: start: 20060301
  2. EPOGEN [Suspect]
     Indication: RENAL FAILURE CHRONIC
  3. EPOGEN [Suspect]
     Dates: start: 20060301
  4. ZEMPLAR [Concomitant]

REACTIONS (2)
  - EPISTAXIS [None]
  - HYPERTENSION [None]
